FAERS Safety Report 4740633-6 (Version None)
Quarter: 2005Q3

REPORT INFORMATION
  Report Type: 
  Country: None (occurrence: None)
  Receive Date: 20050801
  Receipt Date: 20050331
  Transmission Date: 20060218
  Serious: No
  Sender: FDA-Public Use
  Company Number: 800330

PATIENT
  Age: 57 Year
  Sex: Male

DRUGS (11)
  1. EXTRANEAL [Suspect]
     Indication: THERAPEUTIC PROCEDURE
     Dosage: EVERY DAY; IP
     Route: 033
     Dates: start: 20050321, end: 20050327
  2. ATACAND [Concomitant]
  3. BACTROBAN [Concomitant]
  4. HECTORAL [Concomitant]
  5. HUMULIN 70/30 [Concomitant]
  6. REGULAR INSULIN [Concomitant]
  7. LASIX [Concomitant]
  8. QUINAMM [Concomitant]
  9. TOPROL-XL [Concomitant]
  10. TUMS [Concomitant]
  11. ZYLOPRIM [Concomitant]

REACTIONS (5)
  - ERYTHEMA [None]
  - HEADACHE [None]
  - HYPERHIDROSIS [None]
  - PRURITUS [None]
  - URTICARIA [None]
